FAERS Safety Report 17482805 (Version 5)
Quarter: 2021Q4

REPORT INFORMATION
  Report Type: Spontaneous
  Country: IN (occurrence: IN)
  Receive Date: 20200302
  Receipt Date: 20211213
  Transmission Date: 20220303
  Serious: Yes (Other)
  Sender: FDA-Public Use
  Company Number: IN-PFIZER INC-2020051232

PATIENT
  Age: 68 Year
  Sex: Female

DRUGS (6)
  1. PALBOCICLIB [Suspect]
     Active Substance: PALBOCICLIB
     Indication: Breast cancer metastatic
     Dosage: 125 MG, ONCE A DAY, FOR 21 DAYS ON AND 7 DAYS OFF
     Route: 048
     Dates: start: 20200101
  2. PALBOCICLIB [Suspect]
     Active Substance: PALBOCICLIB
     Dosage: 125 MG, 1X/DAY
     Route: 048
     Dates: start: 20200201
  3. PALBOCICLIB [Suspect]
     Active Substance: PALBOCICLIB
     Dosage: 125 MG, CYCLIC ((125MG)1-0-0 X 21 DAYS + 7DAYS OFF )
     Route: 048
     Dates: start: 20210728
  4. AROMITA [Concomitant]
     Indication: Breast cancer metastatic
     Dosage: UNK
  5. LETROZOLE [Concomitant]
     Active Substance: LETROZOLE
     Indication: Breast cancer metastatic
     Dosage: 2.5 MG, 1X/DAY
     Dates: start: 202002
  6. CCM [Concomitant]
     Dosage: UNK, 1X/DAY

REACTIONS (5)
  - Blood pressure increased [Unknown]
  - Epistaxis [Unknown]
  - Nasopharyngitis [Unknown]
  - Cough [Unknown]
  - Carbohydrate antigen 15-3 increased [Unknown]
